FAERS Safety Report 9214735 (Version 2)
Quarter: 2013Q2

REPORT INFORMATION
  Report Type: Spontaneous
  Country: US (occurrence: US)
  Receive Date: 20130405
  Receipt Date: 20130513
  Transmission Date: 20140414
  Serious: Yes (Life-Threatening, Hospitalization)
  Sender: FDA-Public Use
  Company Number: US-ASTRAZENECA-2013SE20390

PATIENT
  Age: 38 Year
  Sex: Male
  Weight: 90.7 kg

DRUGS (6)
  1. CRESTOR [Suspect]
     Indication: HYPERCHOLESTEROLAEMIA
     Route: 048
     Dates: start: 20120716
  2. CYMBALTA [Suspect]
     Indication: DEPRESSION
     Route: 048
     Dates: start: 20120716
  3. LORAZEPAM [Suspect]
     Indication: ANXIETY
     Route: 048
     Dates: start: 200908
  4. TOFACITINIB CITRATE [Suspect]
     Indication: PSORIASIS
     Route: 048
     Dates: start: 20110712, end: 20120220
  5. TOFACITINIB CITRATE [Suspect]
     Indication: PSORIASIS
     Route: 048
     Dates: start: 20120220, end: 20120520
  6. TOFACITINIB CITRATE [Suspect]
     Indication: PSORIASIS
     Route: 048
     Dates: start: 20120521, end: 20121210

REACTIONS (12)
  - Pneumonia aspiration [Unknown]
  - Renal failure acute [Unknown]
  - Dehydration [Unknown]
  - Gastrointestinal haemorrhage [Unknown]
  - Vocal cord disorder [Unknown]
  - Vocal cord paralysis [Unknown]
  - Clostridium difficile infection [Unknown]
  - Polyp [Unknown]
  - Diarrhoea haemorrhagic [Unknown]
  - Tracheal stenosis [Unknown]
  - Pancreatitis acute [Unknown]
  - Dysphagia [Unknown]
